FAERS Safety Report 7144901-2 (Version None)
Quarter: 2010Q4

REPORT INFORMATION
  Report Type: 
  Country: None (occurrence: None)
  Receive Date: 20101123
  Receipt Date: 20101007
  Transmission Date: 20110411
  Serious: No
  Sender: FDA-Public Use
  Company Number: 020203

PATIENT
  Sex: Female

DRUGS (2)
  1. CIMZIA [Suspect]
     Indication: CROHN'S DISEASE
     Dosage: 400 MG 1X/4 WEEKS, LOT NUMBER 55959 (SW) EXPIRY DATE 24/MAY/2013 SUBCUTANEOUS)
     Route: 058
     Dates: start: 20090716
  2. CIMZIA [Suspect]

REACTIONS (1)
  - ABDOMINAL PAIN [None]
